FAERS Safety Report 10556636 (Version 1)
Quarter: 2014Q4

REPORT INFORMATION
  Report Type: Spontaneous
  Country: US (occurrence: US)
  Receive Date: 20141031
  Receipt Date: 20141031
  Transmission Date: 20150529
  Serious: Yes (Death, Hospitalization, Other)
  Sender: FDA-Public Use
  Company Number: PHHY2014US139868

PATIENT
  Age: 73 Year
  Sex: Female

DRUGS (4)
  1. ZOLEDRONATE [Suspect]
     Active Substance: ZOLEDRONIC ACID
     Indication: PLASMA CELL MYELOMA
     Route: 065
  2. DEXAMETASON [Concomitant]
     Active Substance: DEXAMETHASONE
     Indication: PLASMA CELL MYELOMA
     Route: 065
  3. REVLIMID [Concomitant]
     Active Substance: LENALIDOMIDE
     Indication: PLASMA CELL MYELOMA
     Route: 065
  4. VELCADE [Concomitant]
     Active Substance: BORTEZOMIB
     Indication: PLASMA CELL MYELOMA
     Route: 065

REACTIONS (18)
  - Pyrexia [Unknown]
  - Nausea [Unknown]
  - Wheezing [Unknown]
  - Pancytopenia [Unknown]
  - Electrocardiogram QT prolonged [Unknown]
  - Cardiac arrest [Fatal]
  - Dizziness [Unknown]
  - Oedema peripheral [Unknown]
  - Hypocalcaemia [Recovering/Resolving]
  - Febrile neutropenia [Unknown]
  - Rales [Unknown]
  - Pulmonary oedema [Unknown]
  - Acute kidney injury [Unknown]
  - Blood creatinine increased [Recovering/Resolving]
  - Generalised tonic-clonic seizure [Unknown]
  - Cardiomegaly [Unknown]
  - Vomiting [Unknown]
  - Respiratory distress [Unknown]
